FAERS Safety Report 9948378 (Version 1)
Quarter: 2014Q1

REPORT INFORMATION
  Report Type: Report from Study
  Country: US (occurrence: US)
  Receive Date: 20140303
  Receipt Date: 20140303
  Transmission Date: 20141002
  Serious: No
  Sender: FDA-Public Use
  Company Number: US-ABBVIE-13P-163-1059413-00

PATIENT
  Age: 45 Year
  Sex: Female

DRUGS (7)
  1. HUMIRA [Suspect]
     Indication: RHEUMATOID ARTHRITIS
     Dates: start: 20130226
  2. VICODIN [Concomitant]
     Indication: PAIN
  3. LITHIUM [Concomitant]
     Indication: BIPOLAR DISORDER
  4. SEROQUEL [Concomitant]
     Indication: BIPOLAR DISORDER
  5. DILANTIN [Concomitant]
     Indication: CONVULSION
  6. LEVOTHYROXIN [Concomitant]
     Indication: HYPOTHYROIDISM
  7. TEMAZEPAM [Concomitant]
     Indication: INSOMNIA

REACTIONS (4)
  - Toothache [Not Recovered/Not Resolved]
  - Tooth abscess [Not Recovered/Not Resolved]
  - Headache [Not Recovered/Not Resolved]
  - Sinusitis [Not Recovered/Not Resolved]
